FAERS Safety Report 6366722-0 (Version None)
Quarter: 2009Q3

REPORT INFORMATION
  Report Type: 
  Country: None (occurrence: None)
  Receive Date: 20090921
  Receipt Date: 20090910
  Transmission Date: 20100115
  Serious: Yes (Other)
  Sender: FDA-Public Use
  Company Number: US-ASTRAZENECA-2009SE12917

PATIENT
  Age: 55 Year
  Sex: Male

DRUGS (2)
  1. CRESTOR [Suspect]
     Route: 048
     Dates: end: 20090901
  2. LISINOPRIL [Concomitant]
     Dates: start: 20090901

REACTIONS (1)
  - PHOTOSENSITIVITY REACTION [None]
